FAERS Safety Report 17524530 (Version 1)
Quarter: 2020Q1

REPORT INFORMATION
  Report Type: Spontaneous
  Country: US (occurrence: US)
  Receive Date: 20200310
  Receipt Date: 20200310
  Transmission Date: 20200409
  Serious: No
  Sender: FDA-Public Use
  Company Number: None

PATIENT
  Age: 72 Year
  Sex: Female

DRUGS (19)
  1. ESCITALOPRAM [Concomitant]
     Active Substance: ESCITALOPRAM OXALATE
  2. ASPIRIN. [Concomitant]
     Active Substance: ASPIRIN
  3. LISINOPRIL. [Concomitant]
     Active Substance: LISINOPRIL
  4. RESVERATROL [Concomitant]
     Active Substance: DIETARY SUPPLEMENT\RESVERATROL
  5. EXEMESTANE. [Concomitant]
     Active Substance: EXEMESTANE
  6. EVEROLIMUS. [Suspect]
     Active Substance: EVEROLIMUS
  7. COENZYME Q10 [Concomitant]
     Active Substance: UBIDECARENONE
  8. RESVERATROL [Concomitant]
     Active Substance: DIETARY SUPPLEMENT\RESVERATROL
  9. AMOXICILLIN. [Concomitant]
     Active Substance: AMOXICILLIN
  10. HAIR SKIN AND NAILS [Concomitant]
  11. SIMVASTATIN. [Concomitant]
     Active Substance: SIMVASTATIN
  12. VANQUISH [Concomitant]
     Active Substance: ACETAMINOPHEN\ASPIRIN\CAFFEINE
  13. IBUPROFEN. [Concomitant]
     Active Substance: IBUPROFEN
  14. ONDANSETRON [Concomitant]
     Active Substance: ONDANSETRON
  15. XGEVA [Concomitant]
     Active Substance: DENOSUMAB
  16. MULTIVITAMINS [Concomitant]
     Active Substance: VITAMINS
  17. PYRIDOSTIGMINE BROMIDE. [Concomitant]
     Active Substance: PYRIDOSTIGMINE BROMIDE
  18. CALCIUM CITRATE [Concomitant]
     Active Substance: CALCIUM CITRATE
  19. GLYCOPYRROLATE. [Concomitant]
     Active Substance: GLYCOPYRROLATE

REACTIONS (1)
  - Stomatitis [None]

NARRATIVE: CASE EVENT DATE: 20200310
